FAERS Safety Report 4634779-0 (Version None)
Quarter: 2005Q2

REPORT INFORMATION
  Report Type: 
  Country: None (occurrence: None)
  Receive Date: 20050412
  Receipt Date: 20050412
  Transmission Date: 20051028
  Serious: Yes (Hospitalization)
  Sender: FDA-Public Use
  Company Number: None

PATIENT
  Age: 67 Year
  Sex: Male
  Weight: 89.9 kg

DRUGS (2)
  1. WARFARIN SODIUM [Suspect]
     Indication: KNEE ARTHROPLASTY
     Dosage: 1MG  DAILY ORAL
     Route: 048
     Dates: start: 20050108, end: 20050113
  2. KETOROLAC [Suspect]
     Indication: KNEE ARTHROPLASTY
     Dosage: 10MG  Q6H  ORAL
     Route: 048
     Dates: start: 20050109, end: 20050113

REACTIONS (1)
  - GASTROINTESTINAL HAEMORRHAGE [None]
